FAERS Safety Report 20750961 (Version 1)
Quarter: 2022Q2

REPORT INFORMATION
  Report Type: Spontaneous
  Country: CN (occurrence: None)
  Receive Date: 20220426
  Receipt Date: 20220426
  Transmission Date: 20220721
  Serious: Yes (Hospitalization)
  Sender: FDA-Public Use
  Company Number: CN-ROCHE-3082678

PATIENT
  Age: 54 Year
  Sex: Female

DRUGS (11)
  1. PERJETA [Suspect]
     Active Substance: PERTUZUMAB
     Indication: Invasive breast carcinoma
     Dosage: 840MG FOR THE FIRST TIME, FOLLOWED BY 420MG
     Route: 065
     Dates: start: 20211221
  2. PERJETA [Suspect]
     Active Substance: PERTUZUMAB
     Route: 065
  3. PERJETA [Suspect]
     Active Substance: PERTUZUMAB
     Route: 041
     Dates: start: 20220414, end: 20220414
  4. HERCEPTIN [Suspect]
     Active Substance: TRASTUZUMAB
     Indication: Invasive breast carcinoma
     Dosage: 8MG/KG FOR THE FIRST TIME, ACTUAL DOSE 376MG, FOLLOWED BY 6MG/KG, 270 MG
     Route: 041
     Dates: start: 20211221
  5. HERCEPTIN [Suspect]
     Active Substance: TRASTUZUMAB
     Dosage: 6MG/KG
     Route: 041
  6. HERCEPTIN [Suspect]
     Active Substance: TRASTUZUMAB
     Route: 041
     Dates: start: 20220414, end: 20220414
  7. DOCETAXEL [Suspect]
     Active Substance: DOCETAXEL
     Indication: Invasive breast carcinoma
     Dosage: 75MG/M2
     Route: 065
  8. DOCETAXEL [Suspect]
     Active Substance: DOCETAXEL
     Route: 041
     Dates: start: 20220414, end: 20220414
  9. XELODA [Suspect]
     Active Substance: CAPECITABINE
     Indication: Invasive breast carcinoma
     Dosage: 1000MG/M2, ACTUAL DOSE 1500MG IN THE MORNING AND 1000MG IN THE EVENING
     Route: 048
  10. SODIUM CHLORIDE [Concomitant]
     Active Substance: SODIUM CHLORIDE
     Route: 041
     Dates: start: 20220414, end: 20220414
  11. PACLITAXEL [Concomitant]
     Active Substance: PACLITAXEL
     Indication: Invasive breast carcinoma
     Dosage: 80MG/M2
     Route: 065
     Dates: start: 20211221

REACTIONS (3)
  - Hypotension [Recovering/Resolving]
  - Myelosuppression [Recovering/Resolving]
  - Infusion related reaction [Recovering/Resolving]

NARRATIVE: CASE EVENT DATE: 20220415
